FAERS Safety Report 23016258 (Version 2)
Quarter: 2023Q4

REPORT INFORMATION
  Report Type: Report from Study
  Country: FR (occurrence: FR)
  Receive Date: 20231002
  Receipt Date: 20231221
  Transmission Date: 20240110
  Serious: Yes (Death, Other)
  Sender: FDA-Public Use
  Company Number: FR-GILEAD-2022-0592802

PATIENT
  Age: 56 Year
  Sex: Female
  Weight: 49 kg

DRUGS (14)
  1. SACITUZUMAB GOVITECAN-HZIY [Suspect]
     Active Substance: SACITUZUMAB GOVITECAN-HZIY
     Indication: Triple negative breast cancer
     Dosage: 10 MG/KG C1D1 AND C1D8
     Route: 042
     Dates: start: 20220601, end: 20220608
  2. SACITUZUMAB GOVITECAN-HZIY [Suspect]
     Active Substance: SACITUZUMAB GOVITECAN-HZIY
     Dosage: 10 MG/KG C2D1 AND C2D8
     Route: 042
     Dates: start: 20220622, end: 20220629
  3. SACITUZUMAB GOVITECAN-HZIY [Suspect]
     Active Substance: SACITUZUMAB GOVITECAN-HZIY
     Dosage: 8 MG/KG C3D1 AND C3D8
     Route: 042
     Dates: start: 20220720, end: 20220727
  4. SACITUZUMAB GOVITECAN-HZIY [Suspect]
     Active Substance: SACITUZUMAB GOVITECAN-HZIY
     Dosage: 8 MG/KG C4D1 AND C4D8
     Route: 042
     Dates: start: 20220810, end: 20220817
  5. SACITUZUMAB GOVITECAN-HZIY [Suspect]
     Active Substance: SACITUZUMAB GOVITECAN-HZIY
     Dosage: 8 MG/KG C5D1 AND C5D8
     Route: 042
     Dates: start: 20220831, end: 20220907
  6. SACITUZUMAB GOVITECAN-HZIY [Suspect]
     Active Substance: SACITUZUMAB GOVITECAN-HZIY
     Dosage: 8 MG/KG C6D1 AND C6D8
     Route: 042
     Dates: start: 20220921, end: 20220928
  7. SACITUZUMAB GOVITECAN-HZIY [Suspect]
     Active Substance: SACITUZUMAB GOVITECAN-HZIY
     Dosage: 8 MG/KG C7D1 AND C7D8
     Route: 042
     Dates: start: 20221012, end: 20221019
  8. SACITUZUMAB GOVITECAN-HZIY [Suspect]
     Active Substance: SACITUZUMAB GOVITECAN-HZIY
     Dosage: 10 MG/KG C8D1 AND D8
     Route: 042
     Dates: start: 20221102, end: 20221109
  9. SACITUZUMAB GOVITECAN-HZIY [Suspect]
     Active Substance: SACITUZUMAB GOVITECAN-HZIY
     Dosage: 7.5 MG/KG C9D1 AND D8
     Route: 042
     Dates: start: 20221130, end: 20221207
  10. SACITUZUMAB GOVITECAN-HZIY [Suspect]
     Active Substance: SACITUZUMAB GOVITECAN-HZIY
     Dosage: 6.0 MG/KG C10D1 AND D8
     Route: 042
     Dates: start: 20221221, end: 20221228
  11. SACITUZUMAB GOVITECAN-HZIY [Suspect]
     Active Substance: SACITUZUMAB GOVITECAN-HZIY
     Dosage: 6.0 MG/KG C11D1 AND D8 (TREATMENT INTERRUPTION BETWEEN 31-JAN-2023 TO 08-FEB-2023
     Route: 042
     Dates: start: 20230111, end: 20230118
  12. SACITUZUMAB GOVITECAN-HZIY [Suspect]
     Active Substance: SACITUZUMAB GOVITECAN-HZIY
     Dosage: 6.0 MG/KG C12D1 AND D8
     Route: 042
     Dates: start: 20230208, end: 20230215
  13. SACITUZUMAB GOVITECAN-HZIY [Suspect]
     Active Substance: SACITUZUMAB GOVITECAN-HZIY
     Dosage: 335 MG
     Route: 042
  14. SACITUZUMAB GOVITECAN-HZIY [Suspect]
     Active Substance: SACITUZUMAB GOVITECAN-HZIY
     Dosage: 6 MG/KG
     Route: 042
     Dates: end: 20230920

REACTIONS (6)
  - Neutropenia [Recovered/Resolved]
  - Death [Fatal]
  - Disease progression [Unknown]
  - Microbiology test abnormal [Not Recovered/Not Resolved]
  - Inappropriate schedule of product administration [Unknown]
  - General physical condition abnormal [Unknown]

NARRATIVE: CASE EVENT DATE: 20220712
